FAERS Safety Report 7101455-4 (Version None)
Quarter: 2010Q4

REPORT INFORMATION
  Report Type: 
  Country: None (occurrence: None)
  Receive Date: 20101108
  Receipt Date: 20101101
  Transmission Date: 20110411
  Serious: Yes (Life-Threatening, Other)
  Sender: FDA-Public Use
  Company Number: 2010-3730

PATIENT
  Age: 78 Year
  Sex: Female

DRUGS (1)
  1. BOTOULINUM TOXIN TYPE A NOS(BOTULINUM TOXIN TYPE A) (BOTULINUM TOXIN T [Suspect]
     Indication: BLADDER DISORDER
     Dosage: 200 UNITS (200 UNITS,SINGLE CYCLE),INTRAVESICAL
     Route: 043
     Dates: start: 20101018, end: 20101018

REACTIONS (5)
  - EPISTAXIS [None]
  - HAEMOGLOBIN DECREASED [None]
  - HEADACHE [None]
  - MUSCULAR WEAKNESS [None]
  - SYNCOPE [None]
